FAERS Safety Report 6021261-1 (Version None)
Quarter: 2008Q4

REPORT INFORMATION
  Report Type: 
  Country: None (occurrence: None)
  Receive Date: 20081222
  Receipt Date: 20081029
  Transmission Date: 20090506
  Serious: Yes (Hospitalization)
  Sender: FDA-Public Use
  Company Number: US200809003551

PATIENT
  Age: 69 Year
  Sex: Male
  Weight: 57 kg

DRUGS (6)
  1. HUMALOG PEN [Suspect]
  2. HUMALOG PEN [Suspect]
  3. LANTUS [Concomitant]
  4. ARICEPT [Concomitant]
  5. REGLAN [Concomitant]
  6. SIMVASTATIN [Concomitant]

REACTIONS (6)
  - ABDOMINAL DISTENSION [None]
  - APPETITE DISORDER [None]
  - BLOOD GLUCOSE DECREASED [None]
  - BLOOD GLUCOSE INCREASED [None]
  - NAUSEA [None]
  - VOMITING [None]
